FAERS Safety Report 8771602 (Version 1)
Quarter: 2012Q4

REPORT INFORMATION
  Report Type: 
  Country: US (occurrence: US)
  Receive Date: 20120906
  Receipt Date: 20120906
  Transmission Date: 20130627
  Serious: Yes (Hospitalization)
  Sender: FDA-Public Use
  Company Number: US-ACTELION-A-US2012-70748

PATIENT
  Age: 58 Year
  Sex: Female

DRUGS (4)
  1. TRACLEER [Suspect]
     Indication: PULMONARY ARTERIAL HYPERTENSION
     Dosage: UNK
     Route: 048
  2. REMODULIN [Concomitant]
  3. COUMADIN [Concomitant]
  4. LASIX [Concomitant]

REACTIONS (4)
  - Atrial fibrillation [Unknown]
  - Heart rate increased [Unknown]
  - Nasal congestion [Unknown]
  - Oedema [Unknown]
